FAERS Safety Report 10102406 (Version 2)
Quarter: 2014Q2

REPORT INFORMATION
  Report Type: Report from Study
  Country: US (occurrence: US)
  Receive Date: 20140424
  Receipt Date: 20140424
  Transmission Date: 20141212
  Serious: Yes (Hospitalization, Other)
  Sender: FDA-Public Use
  Company Number: US-JNJFOC-20140216788

PATIENT
  Age: 68 Year
  Sex: Female

DRUGS (14)
  1. REMICADE [Suspect]
     Indication: PRODUCT USED FOR UNKNOWN INDICATION
     Route: 042
     Dates: start: 201210, end: 201301
  2. INSULIN GLARGINE [Concomitant]
     Route: 065
  3. ATORVASTATIN [Concomitant]
     Route: 065
  4. TRAMADOL [Concomitant]
     Route: 065
  5. ATENOLOL [Concomitant]
     Route: 065
  6. AMITRIPTYLINE [Concomitant]
     Route: 065
  7. LEVOTHYROXINE [Concomitant]
     Route: 065
  8. LOSARTAN [Concomitant]
     Route: 065
  9. EXENATIDE [Concomitant]
     Route: 065
  10. PREDNISONE [Concomitant]
     Route: 065
  11. FISH OIL [Concomitant]
     Route: 065
  12. VITAMINE E [Concomitant]
     Route: 065
  13. VITAMIN D [Concomitant]
     Route: 065
  14. ASPIRIN [Concomitant]
     Route: 065

REACTIONS (3)
  - Psoriasis [Unknown]
  - Arthritis [Recovering/Resolving]
  - Headache [Recovering/Resolving]
